FAERS Safety Report 19934940 (Version 1)
Quarter: 2021Q4

REPORT INFORMATION
  Report Type: Spontaneous
  Country: FR (occurrence: FR)
  Receive Date: 20211009
  Receipt Date: 20211009
  Transmission Date: 20220303
  Serious: Yes (Death)
  Sender: FDA-Public Use
  Company Number: FR-ABBVIE-21K-056-4111991-00

PATIENT
  Age: 76 Year
  Sex: Female
  Weight: 49 kg

DRUGS (9)
  1. VALPROATE SODIUM [Suspect]
     Active Substance: VALPROATE SODIUM
     Indication: Bipolar disorder
     Route: 048
     Dates: start: 20180807, end: 20181002
  2. TERALITHE [Suspect]
     Active Substance: LITHIUM CARBONATE
     Indication: Bipolar disorder
     Route: 048
     Dates: start: 20180917, end: 20181002
  3. AMOXICILLIN [Suspect]
     Active Substance: AMOXICILLIN
     Indication: Pneumonia aspiration
     Route: 048
     Dates: start: 20180925, end: 20181002
  4. CLAVULANIC ACID [Suspect]
     Active Substance: CLAVULANIC ACID
     Indication: Pneumonia aspiration
     Route: 048
     Dates: start: 20180925, end: 20181002
  5. OLANZAPINE [Suspect]
     Active Substance: OLANZAPINE
     Indication: Bipolar disorder
     Route: 048
     Dates: start: 20180924, end: 20181002
  6. ACETAMINOPHEN [Concomitant]
     Active Substance: ACETAMINOPHEN
     Indication: Product used for unknown indication
     Route: 065
  7. POTASSIUM CHLORIDE [Concomitant]
     Active Substance: POTASSIUM CHLORIDE
     Indication: Product used for unknown indication
  8. CHOLECALCIFEROL [Concomitant]
     Active Substance: CHOLECALCIFEROL
     Indication: Product used for unknown indication
  9. MACROGOL 1000 [Concomitant]
     Indication: Product used for unknown indication

REACTIONS (5)
  - Toxicity to various agents [Fatal]
  - Hypernatraemia [Fatal]
  - Encephalopathy [Fatal]
  - Hyperleukocytosis [Fatal]
  - Drug interaction [Unknown]

NARRATIVE: CASE EVENT DATE: 20181002
